FAERS Safety Report 16958263 (Version 3)
Quarter: 2019Q4

REPORT INFORMATION
  Report Type: Spontaneous
  Country: CA (occurrence: CA)
  Receive Date: 20191024
  Receipt Date: 20191118
  Transmission Date: 20200122
  Serious: Yes (Death, Other)
  Sender: FDA-Public Use
  Company Number: CA-CELGENEUS-CAN-20191006233

PATIENT
  Age: 67 Year
  Sex: Male
  Weight: 58.11 kg

DRUGS (4)
  1. METFORMIN [Concomitant]
     Active Substance: METFORMIN HYDROCHLORIDE
     Indication: DIABETES MELLITUS
     Dosage: 500 MILLIGRAM
     Route: 065
  2. VIDAZA [Suspect]
     Active Substance: AZACITIDINE
     Indication: ACUTE MYELOID LEUKAEMIA
     Dosage: .75 MILLIGRAM
     Route: 058
     Dates: start: 201610, end: 201910
  3. LANTUS [Concomitant]
     Active Substance: INSULIN GLARGINE
     Indication: DIABETES MELLITUS
     Route: 065
     Dates: end: 201910
  4. MULTIVITAMIN [Concomitant]
     Active Substance: VITAMINS
     Indication: ROUTINE HEALTH MAINTENANCE
     Route: 048

REACTIONS (6)
  - Hepatitis B [Unknown]
  - Acute myeloid leukaemia [Unknown]
  - Cerebrovascular accident [Unknown]
  - Ascites [Unknown]
  - Hepatic failure [Fatal]
  - Cholelithiasis [Unknown]

NARRATIVE: CASE EVENT DATE: 201611
